FAERS Safety Report 4470746-8 (Version None)
Quarter: 2004Q4

REPORT INFORMATION
  Report Type: 
  Country: None (occurrence: None)
  Receive Date: 20041006
  Receipt Date: 20041004
  Transmission Date: 20050328
  Serious: Yes (Other)
  Sender: FDA-Public Use
  Company Number: THQ2004A00874

PATIENT
  Age: 76 Year
  Sex: Female

DRUGS (4)
  1. LANSOPRAZOLE [Suspect]
     Dosage: 15 MG
     Route: 048
  2. ASPIRIN [Concomitant]
  3. CLOPIDOGREL (CLOPIDOGREL) [Concomitant]
  4. ATORVASTATIN (ATORVASTATIN) [Concomitant]

REACTIONS (3)
  - EYE HAEMORRHAGE [None]
  - INSOMNIA [None]
  - PURPURA [None]
